FAERS Safety Report 21261253 (Version 2)
Quarter: 2022Q4

REPORT INFORMATION
  Report Type: Report from Study
  Country: JP (occurrence: JP)
  Receive Date: 20220826
  Receipt Date: 20221003
  Transmission Date: 20230113
  Serious: Yes (Other)
  Sender: FDA-Public Use
  Company Number: JP-ABBVIE-21K-087-3832059-00

PATIENT
  Sex: Female

DRUGS (2)
  1. CARBIDOPA\LEVODOPA [Suspect]
     Active Substance: CARBIDOPA\LEVODOPA
     Indication: Parkinson^s disease
     Route: 050
     Dates: start: 20210309
  2. CARBIDOPA\LEVODOPA [Suspect]
     Active Substance: CARBIDOPA\LEVODOPA

REACTIONS (14)
  - Surgery [Unknown]
  - Drug ineffective [Unknown]
  - Device breakage [Unknown]
  - Embedded device [Unknown]
  - Skin irritation [Unknown]
  - Abdominal pain upper [Unknown]
  - Malaise [Unknown]
  - Stoma site extravasation [Unknown]
  - Dyskinesia [Unknown]
  - Abdominal pain [Unknown]
  - Stoma site hypergranulation [Unknown]
  - Stoma site haemorrhage [Unknown]
  - Pain [Unknown]
  - Stoma site discharge [Unknown]

NARRATIVE: CASE EVENT DATE: 20210101
